FAERS Safety Report 21104290 (Version 2)
Quarter: 2022Q3

REPORT INFORMATION
  Report Type: Other
  Country: DE (occurrence: DE)
  Receive Date: 20220720
  Receipt Date: 20220722
  Transmission Date: 20221027
  Serious: Yes (Death, Hospitalization, Other)
  Sender: FDA-Public Use
  Company Number: DE-CELLTRION INC.-2022DE011239

PATIENT

DRUGS (25)
  1. RITUXIMAB [Suspect]
     Active Substance: RITUXIMAB
     Indication: Non-Hodgkin^s lymphoma
     Dosage: FIRST 100MG TOTAL, THEN 375 MG/M2 UP TO 100 MG, THEN 375 MG/M2
     Route: 042
     Dates: start: 20160919
  2. RITUXIMAB [Suspect]
     Active Substance: RITUXIMAB
     Dosage: ONCE CYCLE R-CHOP
     Route: 042
     Dates: start: 20210910, end: 20211122
  3. RITUXIMAB [Suspect]
     Active Substance: RITUXIMAB
     Dosage: 100 MILLIGRAM
     Route: 042
     Dates: start: 20170411, end: 20170421
  4. RITUXIMAB [Suspect]
     Active Substance: RITUXIMAB
     Dosage: 100 MILLIGRAM
     Route: 042
     Dates: start: 20210817
  5. RITUXIMAB [Suspect]
     Active Substance: RITUXIMAB
     Dosage: FIRST 100MG TOTAL, THEN 375 MG/M2 UP TO 100 MG, THEN 375 MG/M2
     Route: 042
     Dates: start: 20170331
  6. RITUXIMAB [Suspect]
     Active Substance: RITUXIMAB
     Dosage: SIX CYCLES R-CHOP 14
     Route: 042
     Dates: start: 20210824
  7. RITUXIMAB [Suspect]
     Active Substance: RITUXIMAB
     Dosage: ONE CYCLE R-CHOP AFTER CAR-T-CELL THERAPY
     Route: 042
     Dates: start: 20220426, end: 20220426
  8. RITUXIMAB [Suspect]
     Active Substance: RITUXIMAB
     Dosage: ONE CYCLE R-CHOP AFTER CAR-T-CELL THERAPY
     Route: 042
     Dates: start: 202206, end: 202206
  9. RITUXIMAB [Suspect]
     Active Substance: RITUXIMAB
     Dosage: ONCE CYCLE R-CHOP
     Route: 042
     Dates: start: 20220324, end: 20220328
  10. CYCLOPHOSPHAMIDE\DOXORUBICIN\PREDNISONE\VINCRISTINE [Suspect]
     Active Substance: CYCLOPHOSPHAMIDE\DOXORUBICIN\PREDNISONE\VINCRISTINE
     Indication: Non-Hodgkin^s lymphoma
     Dosage: ONE CYCLE R-CHOP AFTER CAR-T-CELL THERAPY
     Dates: start: 202206, end: 202206
  11. CYCLOPHOSPHAMIDE\DOXORUBICIN\PREDNISONE\VINCRISTINE [Suspect]
     Active Substance: CYCLOPHOSPHAMIDE\DOXORUBICIN\PREDNISONE\VINCRISTINE
     Dosage: ONE CYCLE R-CHOP
     Dates: start: 20220426, end: 20220426
  12. CYCLOPHOSPHAMIDE\DOXORUBICIN\PREDNISONE\VINCRISTINE [Suspect]
     Active Substance: CYCLOPHOSPHAMIDE\DOXORUBICIN\PREDNISONE\VINCRISTINE
     Dosage: ONE CYCLE R-CHOP
     Dates: start: 20220324, end: 20220328
  13. CYCLOPHOSPHAMIDE\DOXORUBICIN\PREDNISONE\VINCRISTINE [Suspect]
     Active Substance: CYCLOPHOSPHAMIDE\DOXORUBICIN\PREDNISONE\VINCRISTINE
     Dosage: SIX CYCLES R-CHOP 14
     Dates: start: 20210910, end: 20211122
  14. MYCOPHENOLATE MOFETIL [Suspect]
     Active Substance: MYCOPHENOLATE MOFETIL
     Indication: Graft versus host disease in liver
     Dates: start: 20170919, end: 20180222
  15. COTRIM [Concomitant]
     Active Substance: SULFAMETHOXAZOLE\TRIMETHOPRIM
     Dosage: (DATE AND TIME OF LAST ADMINISTRATION: 11DEC2018)
  16. VENETOCLAX [Concomitant]
     Active Substance: VENETOCLAX
     Indication: Non-Hodgkin^s lymphoma
     Dosage: SLOW DOSE INCREASE UP TO 400 MG IN TOTAL
     Dates: start: 20170311, end: 20170421
  17. VENETOCLAX [Concomitant]
     Active Substance: VENETOCLAX
     Dosage: SLOW UPDOSING FROM 20MG TO FINALLY 400 MG REACHED ON 13-AUG-2021
     Dates: start: 20210804
  18. PREDNISONE [Concomitant]
     Active Substance: PREDNISONE
     Dates: start: 20170907
  19. ACYCLOVIR [Concomitant]
     Active Substance: ACYCLOVIR
     Dosage: STOP DATE: 11-DEC-2018
  20. IBRUTINIB [Concomitant]
     Active Substance: IBRUTINIB
     Indication: Non-Hodgkin^s lymphoma
     Dosage: 420 MILLIGRAM
     Dates: start: 20161013
  21. IBRUTINIB [Concomitant]
     Active Substance: IBRUTINIB
     Dosage: UNK
     Dates: start: 20210831
  22. CYCLOPHOSPHAMIDE [Concomitant]
     Active Substance: CYCLOPHOSPHAMIDE
     Indication: Non-Hodgkin^s lymphoma
     Dates: start: 20220429, end: 20220501
  23. FLUDARABINE [Concomitant]
     Active Substance: FLUDARABINE PHOSPHATE
     Indication: Non-Hodgkin^s lymphoma
     Dates: start: 20220429, end: 20220501
  24. METHOTREXATE SODIUM [Concomitant]
     Active Substance: METHOTREXATE SODIUM
  25. GENETICALLY-MODIFIED AUTOLOGOUS T CELLS NOS [Concomitant]
     Active Substance: GENETICALLY-MODIFIED AUTOLOGOUS T CELLS NOS
     Dosage: UNK
     Dates: start: 20220503

REACTIONS (20)
  - Death [Fatal]
  - Blood bilirubin increased [Unknown]
  - Acute graft versus host disease in liver [Recovering/Resolving]
  - Chronic graft versus host disease in lung [Recovering/Resolving]
  - Mechanical ileus [Recovered/Resolved]
  - Impaired gastric emptying [Not Recovered/Not Resolved]
  - B-cell prolymphocytic leukaemia [Not Recovered/Not Resolved]
  - Lymphoma [Not Recovered/Not Resolved]
  - Vena cava thrombosis [Unknown]
  - Injury [Unknown]
  - Finger amputation [Unknown]
  - Pyrexia [Recovered/Resolved]
  - Herpes zoster [Unknown]
  - Sepsis [Unknown]
  - Tumour lysis syndrome [Unknown]
  - Cytokine release syndrome [Recovered/Resolved]
  - Pancytopenia [Unknown]
  - Renal function test abnormal [Not Recovered/Not Resolved]
  - Gastritis [Unknown]
  - Ill-defined disorder [Recovering/Resolving]

NARRATIVE: CASE EVENT DATE: 20170101
